FAERS Safety Report 4294110-X (Version None)
Quarter: 2004Q1

REPORT INFORMATION
  Report Type: 
  Country: None (occurrence: None)
  Receive Date: 20040211
  Receipt Date: 20040127
  Transmission Date: 20041129
  Serious: Yes (Life-Threatening, Hospitalization)
  Sender: FDA-Public Use
  Company Number: CERZ-10404

PATIENT
  Age: 24 Year
  Sex: Male
  Weight: 66.5 kg

DRUGS (4)
  1. CEREZYME [Suspect]
     Indication: GAUCHER'S DISEASE
     Dosage: 66.5 U/KG Q2WKS; IV
     Route: 042
     Dates: start: 19980201
  2. OXYCODONE HCL [Concomitant]
  3. OXYCONTIN [Concomitant]
  4. FOSAMAX [Concomitant]

REACTIONS (9)
  - ARTHRALGIA [None]
  - CENTRAL LINE INFECTION [None]
  - ENDOCARDITIS [None]
  - GENERALISED OEDEMA [None]
  - INFECTION [None]
  - OEDEMA PERIPHERAL [None]
  - PYREXIA [None]
  - SPLENOMEGALY [None]
  - STAPHYLOCOCCAL BACTERAEMIA [None]
